FAERS Safety Report 23231200 (Version 2)
Quarter: 2023Q4

REPORT INFORMATION
  Report Type: Report from Study
  Country: CA (occurrence: CA)
  Receive Date: 20231127
  Receipt Date: 20231224
  Transmission Date: 20240110
  Serious: Yes (Other)
  Sender: FDA-Public Use
  Company Number: CA-ABBVIE-5506341

PATIENT
  Sex: Male

DRUGS (1)
  1. SKYRIZI [Suspect]
     Active Substance: RISANKIZUMAB-RZAA
     Indication: Psoriasis
     Route: 058
     Dates: start: 20221213

REACTIONS (4)
  - Carcinoid tumour of the gastrointestinal tract [Unknown]
  - Fear of injection [Unknown]
  - Gastric ulcer [Unknown]
  - Aortic aneurysm [Unknown]
